FAERS Safety Report 4830481-0 (Version None)
Quarter: 2005Q4

REPORT INFORMATION
  Report Type: 
  Country: None (occurrence: None)
  Receive Date: 20051117
  Receipt Date: 20051104
  Transmission Date: 20060501
  Serious: Yes (Hospitalization)
  Sender: FDA-Public Use
  Company Number: GBWYE115704NOV05

PATIENT
  Sex: Female
  Weight: 56 kg

DRUGS (10)
  1. ENBREL [Suspect]
     Indication: RHEUMATOID ARTHRITIS
     Route: 058
     Dates: start: 20030717
  2. PENICILLAMINE [Concomitant]
     Dosage: UNKNOWN
     Route: 065
  3. ALENDRONATE SODIUM [Concomitant]
     Dosage: UNKNOWN
     Route: 065
  4. ASPIRIN [Concomitant]
     Dosage: UNKNOWN
     Route: 065
  5. ATENOLOL [Concomitant]
     Dosage: UNKNOWN
     Route: 065
  6. CANDESARTAN [Concomitant]
     Dosage: UNKNOWN
     Route: 065
  7. ETODOLAC [Concomitant]
     Dosage: UNKNOWN
     Route: 065
  8. FISH OIL [Concomitant]
     Dosage: UNKNOWN
     Route: 065
  9. FOSAMAX [Concomitant]
     Dosage: UNKNOWN
     Route: 065
  10. PRAVASTATIN [Concomitant]
     Dosage: UNKNOWN
     Route: 065

REACTIONS (3)
  - CONDITION AGGRAVATED [None]
  - MALAISE [None]
  - RHEUMATOID ARTHRITIS [None]
